FAERS Safety Report 12869075 (Version 4)
Quarter: 2018Q1

REPORT INFORMATION
  Report Type: Report from Study
  Country: US (occurrence: US)
  Receive Date: 20161020
  Receipt Date: 20180105
  Transmission Date: 20180508
  Serious: No
  Sender: FDA-Public Use
  Company Number: US-AMGEN-USASL2016103916

PATIENT
  Age: 73 Year
  Sex: Male

DRUGS (1)
  1. REPATHA [Suspect]
     Active Substance: EVOLOCUMAB
     Indication: BLOOD CHOLESTEROL INCREASED
     Dosage: 140 MG, Q2WK
     Route: 065
     Dates: start: 20160516

REACTIONS (7)
  - Blood cholesterol decreased [Unknown]
  - Back pain [Unknown]
  - Limb discomfort [Unknown]
  - Intentional product misuse [Unknown]
  - Unevaluable event [Unknown]
  - Pain [Unknown]
  - Influenza [Unknown]
